FAERS Safety Report 5498713-6 (Version None)
Quarter: 2007Q4

REPORT INFORMATION
  Report Type: 
  Country: None (occurrence: None)
  Receive Date: 20071026
  Receipt Date: 20070709
  Transmission Date: 20080405
  Serious: No
  Sender: FDA-Public Use
  Company Number: A0662500A

PATIENT
  Age: 59 Year
  Sex: Female

DRUGS (11)
  1. ADVAIR DISKUS 100/50 [Suspect]
     Indication: ASTHMA
     Route: 055
     Dates: start: 20060801
  2. BYETTA [Concomitant]
  3. METFORMIN [Concomitant]
  4. LISINOPRIL [Concomitant]
  5. ATENOLOL [Concomitant]
  6. CELEBREX [Concomitant]
  7. SYNTHROID [Concomitant]
  8. AMITRIPTYLINE HCL [Concomitant]
  9. ASPIRIN [Concomitant]
  10. PRILOSEC [Concomitant]
  11. VIT D [Concomitant]

REACTIONS (3)
  - DYSPHONIA [None]
  - URTICARIA [None]
  - VARICELLA [None]
